FAERS Safety Report 7600921-2 (Version None)
Quarter: 2011Q3

REPORT INFORMATION
  Report Type: 
  Country: None (occurrence: None)
  Receive Date: 20110711
  Receipt Date: 20110629
  Transmission Date: 20111222
  Serious: Yes (Other)
  Sender: FDA-Public Use
  Company Number: SK-TEVA-284556ISR

PATIENT
  Age: 74 Year
  Sex: Male
  Weight: 67 kg

DRUGS (3)
  1. METHOTREXATE [Suspect]
     Indication: RHEUMATOID ARTHRITIS
     Route: 048
     Dates: start: 20050111, end: 20090311
  2. METHOTREXATE [Suspect]
     Dates: start: 20090312, end: 20110511
  3. INVESTIGATIONAL DRUG (CP-690,550) [Suspect]
     Indication: RHEUMATOID ARTHRITIS
     Dosage: 10 MILLIGRAM;
     Route: 048
     Dates: start: 20080619, end: 20110516

REACTIONS (1)
  - BLADDER NEOPLASM [None]
